FAERS Safety Report 7027943-7 (Version None)
Quarter: 2010Q4

REPORT INFORMATION
  Report Type: 
  Country: None (occurrence: None)
  Receive Date: 20101005
  Receipt Date: 20100827
  Transmission Date: 20110411
  Serious: No
  Sender: FDA-Public Use
  Company Number: US-BAYER-201034690NA

PATIENT
  Age: 54 Year
  Sex: Female

DRUGS (2)
  1. ANGELIQ [Suspect]
     Indication: HORMONE REPLACEMENT THERAPY
     Route: 048
     Dates: start: 20100601
  2. ANGELIQ [Suspect]
     Route: 048
     Dates: start: 20100601

REACTIONS (1)
  - ACNE [None]
